FAERS Safety Report 9943239 (Version 1)
Quarter: 2014Q1

REPORT INFORMATION
  Report Type: Report from Study
  Country: KR (occurrence: KR)
  Receive Date: 20140303
  Receipt Date: 20140303
  Transmission Date: 20141002
  Serious: Yes (Hospitalization)
  Sender: FDA-Public Use
  Company Number: KR-GLAXOSMITHKLINE-B0973528A

PATIENT
  Age: 57 Year
  Sex: Female
  Weight: 48.5 kg

DRUGS (2)
  1. LAPATINIB [Suspect]
     Indication: BREAST CANCER
     Dosage: 1250MG PER DAY
     Route: 048
     Dates: start: 20130826
  2. CAPECITABINE [Concomitant]
     Indication: BREAST CANCER
     Dosage: 2800MG PER DAY
     Dates: start: 20130826, end: 20131012

REACTIONS (1)
  - Gastroenteritis [Recovered/Resolved]
